FAERS Safety Report 6940114-5 (Version None)
Quarter: 2010Q3

REPORT INFORMATION
  Report Type: 
  Country: None (occurrence: None)
  Receive Date: 20100825
  Receipt Date: 20100823
  Transmission Date: 20110219
  Serious: Yes (Other)
  Sender: FDA-Public Use
  Company Number: JP-B.I. PHARMACEUTICALS,INC./RIDGEFIELD-2010-BP-07146NB

PATIENT
  Sex: Female
  Weight: 45.4 kg

DRUGS (11)
  1. SPIRIVA [Suspect]
     Indication: EMPHYSEMA
     Dosage: 5 MCG
     Route: 055
     Dates: start: 20100514, end: 20100617
  2. SPIRIVA [Suspect]
     Indication: BRONCHITIS CHRONIC
  3. PROTECADIN [Concomitant]
     Dosage: 2 DF
     Route: 048
     Dates: start: 20051209
  4. MUCODYNE [Concomitant]
     Indication: CHRONIC OBSTRUCTIVE PULMONARY DISEASE
     Dosage: 2 DF
     Route: 048
     Dates: start: 20050228
  5. MUCODYNE [Concomitant]
     Indication: BRONCHITIS CHRONIC
  6. CLARITHROMYCIN [Concomitant]
     Indication: CHRONIC OBSTRUCTIVE PULMONARY DISEASE
     Dosage: 2 DF
     Route: 048
     Dates: start: 20050228
  7. CLARITHROMYCIN [Concomitant]
     Indication: BRONCHITIS CHRONIC
  8. THEO-DUR [Concomitant]
     Indication: CHRONIC OBSTRUCTIVE PULMONARY DISEASE
     Dosage: 1 DF
     Route: 048
     Dates: start: 20050228
  9. THEO-DUR [Concomitant]
     Indication: BRONCHITIS CHRONIC
  10. NORVASC [Concomitant]
     Indication: HYPERTENSION
     Dosage: 1 DF
     Route: 048
     Dates: start: 20021209
  11. MAGMITT [Concomitant]
     Dosage: 2 DF
     Route: 048
     Dates: start: 20080111

REACTIONS (2)
  - CONJUNCTIVITIS [None]
  - INCORRECT ROUTE OF DRUG ADMINISTRATION [None]
